FAERS Safety Report 8089287-4 (Version None)
Quarter: 2012Q1

REPORT INFORMATION
  Report Type: 
  Country: None (occurrence: None)
  Receive Date: 20120128
  Receipt Date: 20110627
  Transmission Date: 20120608
  Serious: No
  Sender: FDA-Public Use
  Company Number: US-ABBOTT-11P-163-0718925-00

PATIENT
  Sex: Female
  Weight: 43.13 kg

DRUGS (8)
  1. DIOVAN [Concomitant]
     Indication: HYPERTENSION
     Route: 048
  2. VITAMIN D [Concomitant]
     Indication: VITAMIN SUPPLEMENTATION
     Route: 048
  3. AMLODIPINE [Concomitant]
     Indication: HYPERTENSION
     Route: 048
  4. CALCIUM [Concomitant]
     Indication: MINERAL SUPPLEMENTATION
     Route: 048
  5. HUMIRA [Suspect]
     Indication: RHEUMATOID ARTHRITIS
     Route: 058
     Dates: start: 20070101
  6. PLAVIX [Concomitant]
     Indication: TRANSIENT ISCHAEMIC ATTACK
     Route: 048
  7. FORTEO [Concomitant]
     Indication: OSTEOPOROSIS
     Route: 058
  8. LEFLUNOMIDE [Concomitant]
     Indication: RHEUMATOID ARTHRITIS
     Route: 048

REACTIONS (6)
  - DRUG DOSE OMISSION [None]
  - INJECTION SITE PAIN [None]
  - DEVICE MALFUNCTION [None]
  - INJECTION SITE HAEMORRHAGE [None]
  - INCORRECT DOSE ADMINISTERED [None]
  - INJECTION SITE HAEMATOMA [None]
